FAERS Safety Report 13753764 (Version 1)
Quarter: 2017Q3

REPORT INFORMATION
  Report Type: Spontaneous
  Country: DK (occurrence: DK)
  Receive Date: 20170714
  Receipt Date: 20170714
  Transmission Date: 20171127
  Serious: Yes (Death, Other)
  Sender: FDA-Public Use
  Company Number: DK-TEVA-784418ACC

PATIENT
  Age: 84 Year
  Sex: Female

DRUGS (11)
  1. AMLODIPIN [Concomitant]
     Active Substance: AMLODIPINE BESYLATE
     Indication: PRODUCT USED FOR UNKNOWN INDICATION
  2. MAGNESIA ^DAK^ [Concomitant]
     Indication: CONSTIPATION
     Dates: start: 20170609, end: 201706
  3. EMTHEXATE [Suspect]
     Active Substance: METHOTREXATE
     Indication: RHEUMATOID ARTHRITIS
     Dosage: DOSAGE: VARIABLE, 4-6 TABLETS ONCE WEEKLY,
     Route: 048
     Dates: start: 20170523, end: 20170610
  4. KALEORID [Concomitant]
     Active Substance: POTASSIUM CHLORIDE
     Indication: HYPOKALAEMIA
     Dates: start: 20170505, end: 201706
  5. PREDNISOLON ^DAK^ [Concomitant]
     Active Substance: PREDNISOLONE
     Indication: PRODUCT USED FOR UNKNOWN INDICATION
     Route: 048
     Dates: start: 20170509
  6. SIMVASTATIN. [Concomitant]
     Active Substance: SIMVASTATIN
     Indication: PRODUCT USED FOR UNKNOWN INDICATION
     Route: 048
  7. UNIKALK BASIC [Concomitant]
     Indication: MINERAL SUPPLEMENTATION
     Route: 048
     Dates: start: 20170425, end: 201706
  8. DOLOL [Concomitant]
     Active Substance: TRAMADOL
     Indication: PRODUCT USED FOR UNKNOWN INDICATION
  9. PANTOPRAZOLE ^TEVA^ [Concomitant]
     Indication: PROPHYLAXIS AGAINST GASTROINTESTINAL ULCER
     Route: 048
     Dates: start: 20170428, end: 20170619
  10. PINEX [Concomitant]
     Active Substance: ACETAMINOPHEN
     Indication: PRODUCT USED FOR UNKNOWN INDICATION
  11. FOLIMET [Concomitant]
     Indication: ADVERSE DRUG REACTION
     Dates: start: 20170523, end: 201706

REACTIONS (7)
  - Electrolyte imbalance [Fatal]
  - Asthenia [Unknown]
  - Rash [Unknown]
  - Stomatitis [Unknown]
  - Infection [Fatal]
  - Pancytopenia [Fatal]
  - Abdominal discomfort [Unknown]

NARRATIVE: CASE EVENT DATE: 20170527
